FAERS Safety Report 9693738 (Version 2)
Quarter: 2013Q4

REPORT INFORMATION
  Report Type: Report from Study
  Country: CA (occurrence: CA)
  Receive Date: 20131118
  Receipt Date: 20131230
  Transmission Date: 20140711
  Serious: Yes (Death, Hospitalization, Other)
  Sender: FDA-Public Use
  Company Number: CA-ABBVIE-13P-028-1169484-00

PATIENT
  Age: 24 Year
  Sex: Male
  Weight: 158.9 kg

DRUGS (19)
  1. HUMIRA [Suspect]
     Indication: PSORIASIS
     Dosage: UNKNOWN
     Route: 058
     Dates: start: 2009
  2. PREDNISONE [Concomitant]
     Indication: PRODUCT USED FOR UNKNOWN INDICATION
     Dosage: STARTED AT 60 MG, TAPERED OVER TIME TO 15 MG DAILY
     Dates: start: 201304, end: 201311
  3. CELLCEPT [Concomitant]
     Indication: PRODUCT USED FOR UNKNOWN INDICATION
     Dosage: STARTED AT 2000 MG TWICE A DAY, REDUCED TO 500 MG TWICE A DAY
     Dates: start: 201209, end: 201311
  4. ALPRAZOLAM [Concomitant]
     Indication: PRODUCT USED FOR UNKNOWN INDICATION
     Dates: end: 201311
  5. TRAZODONE [Concomitant]
     Indication: PRODUCT USED FOR UNKNOWN INDICATION
     Dosage: AT BEDTIME
     Dates: end: 201311
  6. VENLAFAXINE [Concomitant]
     Indication: PRODUCT USED FOR UNKNOWN INDICATION
     Dates: end: 201311
  7. RISPERIDONE [Concomitant]
     Indication: PRODUCT USED FOR UNKNOWN INDICATION
     Dosage: 3 PILLS, 2 MG; DAILY AT BEDTIME
     Dates: end: 201311
  8. PREDNISONE [Concomitant]
     Indication: PRODUCT USED FOR UNKNOWN INDICATION
     Dates: start: 20130911, end: 20130922
  9. PREDNISONE [Concomitant]
     Dates: start: 20131104, end: 20131105
  10. MYCOPHENOLATE [Concomitant]
     Indication: PRODUCT USED FOR UNKNOWN INDICATION
     Dates: start: 20130911, end: 20130922
  11. MINOCIN [Concomitant]
     Indication: PRODUCT USED FOR UNKNOWN INDICATION
     Dosage: STOPPED AFTER IMPROVEMENT
     Dates: start: 20130911, end: 20130922
  12. TRAZODONE [Concomitant]
     Indication: PRODUCT USED FOR UNKNOWN INDICATION
     Dosage: ONCE DAILY AT BEDTIME
     Dates: start: 20130911, end: 20130922
  13. VENLAFAXINE XR [Concomitant]
     Indication: PRODUCT USED FOR UNKNOWN INDICATION
     Dates: start: 20130911, end: 20130922
  14. RISPERIDONE [Concomitant]
     Indication: PRODUCT USED FOR UNKNOWN INDICATION
     Dosage: ONCE DAILY AT BEDTIME
     Dates: start: 20130911, end: 20130922
  15. OXYNEO [Concomitant]
     Indication: PRODUCT USED FOR UNKNOWN INDICATION
     Dates: start: 20131105, end: 20131105
  16. OXYNEO [Concomitant]
     Dosage: 1 TABLET TWICE DAILY, TAKE WITH THE 20 MG TABLET
  17. OXYNEO [Concomitant]
     Dates: start: 20130911, end: 20131104
  18. ALPRAZ ^APO^ [Concomitant]
     Indication: PRODUCT USED FOR UNKNOWN INDICATION
     Dates: start: 20130911, end: 20131019
  19. OXYCODONE / ACETAMINOPHEN [Concomitant]
     Indication: PRODUCT USED FOR UNKNOWN INDICATION
     Dosage: 5 - 325MG; UNIT DOSE 2 TABLETS; TWICE DAILY IF NEEDED

REACTIONS (8)
  - General physical health deterioration [Fatal]
  - Intestinal perforation [Fatal]
  - Acute respiratory distress syndrome [Fatal]
  - Fistula repair [Recovered/Resolved]
  - Colostomy closure [Unknown]
  - Wound secretion [Unknown]
  - Skin bacterial infection [Unknown]
  - Abdominal pain [Unknown]
